FAERS Safety Report 6612558-2 (Version None)
Quarter: 2010Q1

REPORT INFORMATION
  Report Type: 
  Country: None (occurrence: None)
  Receive Date: 20100303
  Receipt Date: 20100219
  Transmission Date: 20100710
  Serious: Yes (Hospitalization, Other)
  Sender: FDA-Public Use
  Company Number: US-JNJFOC-20100300709

PATIENT
  Age: 4 Year
  Sex: Female
  Weight: 18.14 kg

DRUGS (3)
  1. ACETAMINOPHEN AND CODEINE PHOSPHATE [Suspect]
     Indication: EAR INFECTION
     Dosage: 120MG/12MG/5 ML
     Route: 048
  2. ACETAMINOPHEN AND CODEINE PHOSPHATE [Suspect]
     Indication: PNEUMONIA
     Dosage: 120MG/12MG/5 ML
     Route: 048
  3. PULMICORT [Concomitant]
     Route: 065

REACTIONS (4)
  - HEPATIC ENZYME INCREASED [None]
  - LETHARGY [None]
  - PYREXIA [None]
  - VOMITING [None]
